FAERS Safety Report 9591011 (Version 1)
Quarter: 2013Q4

REPORT INFORMATION
  Report Type: Spontaneous
  Country: US (occurrence: US)
  Receive Date: 20131003
  Receipt Date: 20131003
  Transmission Date: 20140711
  Serious: No
  Sender: FDA-Public Use
  Company Number: US-AMGEN-USASP2012079429

PATIENT
  Sex: Female
  Weight: 77.1 kg

DRUGS (18)
  1. ENBREL [Suspect]
     Indication: RHEUMATOID ARTHRITIS
     Dosage: 50 MG, QWK
     Route: 058
  2. ALLEGRA [Concomitant]
     Dosage: 180 MG, UNK
  3. FOLIC ACID [Concomitant]
     Dosage: 1 MG, UNK
  4. LEXAPRO [Concomitant]
     Dosage: 10 MG, UNK
  5. PREDNISONE [Concomitant]
     Dosage: 5 MG, UNK
  6. CALCIUM [Concomitant]
     Dosage: UNK
  7. MULTIVITAMINS, PLAIN [Concomitant]
     Dosage: UNK
  8. PRILOSEC                           /00661201/ [Concomitant]
     Dosage: 10 MG, UNK
  9. RELAFEN [Concomitant]
     Dosage: 500 MG, UNK
  10. NABUMETON [Concomitant]
     Dosage: 500 MG, UNK
  11. VITAMIN D                          /00107901/ [Concomitant]
     Dosage: 1000 UNIT
  12. VITAMIN B12                        /00056201/ [Concomitant]
     Dosage: 1000 CR
  13. AMBIEN [Concomitant]
     Dosage: 5 MG, UNK
  14. FLONASE [Concomitant]
     Dosage: 0.05 %, UNK
  15. FLOVENT [Concomitant]
     Dosage: 110 MUG, UNK
  16. AMITRIPTYLINE [Concomitant]
     Dosage: 10 MG, UNK
  17. METHOTREXATE [Concomitant]
     Dosage: 2.5 MG, UNK
  18. ALBUTEROL                          /00139501/ [Concomitant]
     Dosage: 90 MUG, UNK

REACTIONS (2)
  - Fatigue [Unknown]
  - Migraine [Unknown]
